FAERS Safety Report 5109832-8 (Version None)
Quarter: 2006Q3

REPORT INFORMATION
  Report Type: 
  Country: None (occurrence: None)
  Receive Date: 20060918
  Receipt Date: 20060918
  Transmission Date: 20061208
  Serious: Yes (Disabling)
  Sender: FDA-Public Use
  Company Number: None

PATIENT
  Sex: Male
  Weight: 102.0593 kg

DRUGS (1)
  1. GABAPENTIN [Suspect]
     Indication: SCIATICA
     Dosage: 300 MG 3 TIMES A DAY PO
     Route: 048
     Dates: start: 20030102, end: 20060912

REACTIONS (8)
  - AMNESIA [None]
  - ANGER [None]
  - CONFUSIONAL STATE [None]
  - DEPRESSION [None]
  - DRUG DEPENDENCE [None]
  - FEAR [None]
  - MOOD SWINGS [None]
  - SUICIDAL IDEATION [None]
